APPROVED DRUG PRODUCT: PEMOLINE
Active Ingredient: PEMOLINE
Strength: 37.5MG
Dosage Form/Route: TABLET;ORAL
Application: A075287 | Product #002
Applicant: WATSON LABORATORIES INC
Approved: Sep 18, 2000 | RLD: No | RS: No | Type: DISCN